FAERS Safety Report 6280299-X (Version None)
Quarter: 2009Q3

REPORT INFORMATION
  Report Type: 
  Country: None (occurrence: None)
  Receive Date: 20090723
  Receipt Date: 20090717
  Transmission Date: 20100115
  Serious: Yes (Other)
  Sender: FDA-Public Use
  Company Number: US-ASTRAZENECA-2009UW20338

PATIENT
  Sex: Female

DRUGS (2)
  1. CRESTOR [Suspect]
     Route: 048
     Dates: start: 20090601
  2. WARFARIN SODIUM [Concomitant]

REACTIONS (3)
  - INSOMNIA [None]
  - MYALGIA [None]
  - RENAL DISORDER [None]
